FAERS Safety Report 22284457 (Version 1)
Quarter: 2023Q2

REPORT INFORMATION
  Report Type: Spontaneous
  Country: None (occurrence: ES)
  Receive Date: 20230504
  Receipt Date: 20230504
  Transmission Date: 20230722
  Serious: Yes (Hospitalization, Other)
  Sender: FDA-Public Use
  Company Number: ES-B.Braun Medical Inc.-2141127

PATIENT
  Age: 7 Year
  Sex: Male

DRUGS (4)
  1. METRONIDAZOLE [Suspect]
     Active Substance: METRONIDAZOLE
     Indication: Surgery
  2. CLOXACILLIN [Suspect]
     Active Substance: CLOXACILLIN
  3. METHYLPREDNISOLONE [Suspect]
     Active Substance: METHYLPREDNISOLONE
  4. CEFOTAXIME SODIUM [Suspect]
     Active Substance: CEFOTAXIME SODIUM

REACTIONS (8)
  - Off label use [Recovered/Resolved]
  - Product administered to patient of inappropriate age [Recovered/Resolved]
  - Drug reaction with eosinophilia and systemic symptoms [Recovered/Resolved]
  - Hepatic cytolysis [Recovered/Resolved]
  - Coagulopathy [Recovered/Resolved]
  - Agranulocytosis [Recovered/Resolved]
  - Hyperbilirubinaemia [Recovered/Resolved]
  - Rash morbilliform [Recovered/Resolved]
